FAERS Safety Report 20057970 (Version 58)
Quarter: 2024Q3

REPORT INFORMATION
  Report Type: Report from Study
  Country: CO (occurrence: CO)
  Receive Date: 20211111
  Receipt Date: 20240730
  Transmission Date: 20241017
  Serious: Yes (Death, Hospitalization, Other)
  Sender: TAKEDA
  Company Number: CO-TAKEDA-CO202016718

PATIENT
  Age: 11 Year
  Sex: Male
  Weight: 48 kg

DRUGS (10)
  1. IDURSULFASE [Suspect]
     Active Substance: IDURSULFASE
     Indication: Mucopolysaccharidosis II
     Dosage: UNK UNK, 1/WEEK
     Route: 042
     Dates: start: 20130226
  2. IDURSULFASE [Suspect]
     Active Substance: IDURSULFASE
     Dosage: 18 MILLIGRAM, 1/WEEK
     Route: 042
     Dates: start: 20130426
  3. IDURSULFASE [Suspect]
     Active Substance: IDURSULFASE
     Dosage: 18 MILLIGRAM
     Route: 042
     Dates: start: 20160722
  4. IDURSULFASE [Suspect]
     Active Substance: IDURSULFASE
     Dosage: 24 MILLIGRAM, 1/WEEK
     Route: 042
  5. IDURSULFASE [Suspect]
     Active Substance: IDURSULFASE
     Dosage: 18 MILLIGRAM, 1/WEEK
     Route: 042
  6. IDURSULFASE [Suspect]
     Active Substance: IDURSULFASE
     Dosage: 14 MILLIGRAM, 1/WEEK
     Route: 042
  7. IDURSULFASE [Suspect]
     Active Substance: IDURSULFASE
     Dosage: UNK
     Route: 065
  8. IDURSULFASE [Suspect]
     Active Substance: IDURSULFASE
     Dosage: 14 MILLIGRAM, Q2WEEKS
     Route: 042
  9. IDURSULFASE [Suspect]
     Active Substance: IDURSULFASE
     Dosage: 14 MILLIGRAM, 1/WEEK
     Route: 042
  10. LEVETIRACETAM [Concomitant]
     Active Substance: LEVETIRACETAM
     Indication: Seizure
     Dosage: UNK
     Route: 048

REACTIONS (51)
  - Death [Fatal]
  - Renal injury [Unknown]
  - Urinary retention [Unknown]
  - Seizure [Recovered/Resolved]
  - Pneumonia [Recovering/Resolving]
  - Drooling [Recovering/Resolving]
  - Influenza [Recovering/Resolving]
  - Urinary glycosaminoglycans increased [Unknown]
  - Creatinine urine abnormal [Unknown]
  - Hypersomnia [Unknown]
  - Poor venous access [Recovered/Resolved]
  - Product prescribing issue [Unknown]
  - Tremor [Recovering/Resolving]
  - Oedema peripheral [Unknown]
  - Pyrexia [Unknown]
  - Decreased appetite [Unknown]
  - Weight decreased [Not Recovered/Not Resolved]
  - Joint injury [Not Recovered/Not Resolved]
  - Crying [Recovering/Resolving]
  - Pain [Not Recovered/Not Resolved]
  - Breath sounds abnormal [Not Recovered/Not Resolved]
  - Facial pain [Not Recovered/Not Resolved]
  - Scratch [Recovering/Resolving]
  - Fall [Recovering/Resolving]
  - Balance disorder [Recovering/Resolving]
  - Nasal congestion [Recovering/Resolving]
  - Discouragement [Recovering/Resolving]
  - Body height decreased [Unknown]
  - Abdominal distension [Recovering/Resolving]
  - Somnolence [Recovering/Resolving]
  - Body height increased [Recovering/Resolving]
  - Cholelithiasis [Recovering/Resolving]
  - Eye movement disorder [Recovering/Resolving]
  - Vision blurred [Recovering/Resolving]
  - Malaise [Recovering/Resolving]
  - Productive cough [Recovering/Resolving]
  - Device issue [Not Recovered/Not Resolved]
  - Insurance issue [Unknown]
  - Treatment noncompliance [Unknown]
  - Product availability issue [Unknown]
  - Viral infection [Recovering/Resolving]
  - Inappropriate schedule of product administration [Unknown]
  - Incorrect dose administered [Unknown]
  - Product prescribing error [Unknown]
  - Incorrect product administration duration [Unknown]
  - General physical health deterioration [Unknown]
  - Dysphagia [Unknown]
  - Eating disorder [Unknown]
  - Mobility decreased [Unknown]
  - Cough [Recovering/Resolving]
  - Arthralgia [Recovering/Resolving]

NARRATIVE: CASE EVENT DATE: 20200511
